FAERS Safety Report 9883216 (Version 1)
Quarter: 2014Q1

REPORT INFORMATION
  Report Type: Spontaneous
  Country: TR (occurrence: TR)
  Receive Date: 20140208
  Receipt Date: 20140208
  Transmission Date: 20141002
  Serious: Yes (Hospitalization)
  Sender: FDA-Public Use
  Company Number: TR-MYLANLABS-2014S1002033

PATIENT
  Age: 55 Year
  Sex: Female

DRUGS (4)
  1. PRAMIPEXOLE [Suspect]
     Indication: PARKINSON^S DISEASE
     Dosage: 4.5MG
     Route: 065
     Dates: start: 2009
  2. RASAGILINE [Concomitant]
     Indication: PARKINSON^S DISEASE
     Dosage: 1MG
     Route: 065
     Dates: start: 2009
  3. SINEMET [Concomitant]
     Indication: PARKINSONISM
     Dosage: 400MG; THEN 1G/DAY
     Route: 065
  4. SINEMET [Concomitant]
     Indication: PARKINSONISM
     Dosage: 1G/DAY
     Route: 065

REACTIONS (1)
  - Pleurothotonus [Recovering/Resolving]
